FAERS Safety Report 9520427 (Version 1)
Quarter: 2013Q3

REPORT INFORMATION
  Report Type: Report from Study
  Country: FR (occurrence: FR)
  Receive Date: 20130912
  Receipt Date: 20130912
  Transmission Date: 20140515
  Serious: No
  Sender: FDA-Public Use
  Company Number: PHHY2013FR099767

PATIENT
  Sex: Male

DRUGS (3)
  1. STI571 [Suspect]
     Dosage: UNK UKN, UNK
     Dates: start: 20051001
  2. TASIGNA [Suspect]
     Dosage: UNK UKN, UNK
     Dates: start: 20051001
  3. SPRYCEL//DASATINIB [Suspect]
     Dosage: UNK UKN, UNK
     Dates: start: 20051001

REACTIONS (3)
  - Anaemia [Unknown]
  - Asthenia [Unknown]
  - Diarrhoea haemorrhagic [Unknown]
